FAERS Safety Report 7763925-5 (Version None)
Quarter: 2011Q3

REPORT INFORMATION
  Report Type: 
  Country: None (occurrence: None)
  Receive Date: 20110921
  Receipt Date: 20110914
  Transmission Date: 20111222
  Serious: Yes (Life-Threatening, Hospitalization)
  Sender: FDA-Public Use
  Company Number: JP-CELGENEUS-087-50794-11072513

PATIENT
  Age: 79 Year
  Sex: Male

DRUGS (27)
  1. SULFAMETHOXAZOLE AND TRIMETHOPRIM [Concomitant]
     Dosage: 2 MILLIGRAM
     Route: 048
     Dates: start: 20110706
  2. MAXIPIME [Concomitant]
     Dosage: 4 GRAM
     Route: 041
     Dates: start: 20110711, end: 20110713
  3. IMMUNE GLOBULIN INTRAVENOUS (HUMAN) [Concomitant]
     Dosage: 5 GRAM
     Route: 041
     Dates: start: 20110713, end: 20110715
  4. GRANISETRON HYDROCHLORIDE [Concomitant]
     Dosage: 2 MILLIGRAM
     Route: 065
  5. VIDAZA [Suspect]
     Dosage: 75 MILLIGRAM/SQ. METER
     Route: 058
     Dates: start: 20110613, end: 20110619
  6. FLUCONAZOLE [Concomitant]
     Dosage: 200 MILLIGRAM
     Route: 048
     Dates: start: 20110706
  7. CLINDAMYCIN PHOSPHATE [Concomitant]
     Dosage: 1200 MILLIGRAM
     Route: 041
     Dates: start: 20110723, end: 20110803
  8. POTASSIUM CITRATE SODIUM CITRATE HYDRATE [Concomitant]
     Dosage: 1.5 GRAM
     Route: 048
  9. SODIUM PICOSULFATE HYDRATE [Concomitant]
     Route: 048
     Dates: start: 20110716
  10. NEUTROGIN [Concomitant]
     Dosage: 100 MICROGRAM
     Route: 058
     Dates: start: 20110705
  11. DORIPENEM MONOHYDRATE [Concomitant]
     Dosage: 1.5 GRAM
     Route: 041
     Dates: start: 20110711, end: 20110713
  12. CIPROFLOXACIN [Concomitant]
     Dosage: 600 MILLIGRAM
     Route: 041
     Dates: start: 20110716, end: 20110803
  13. MENATETRENONE [Concomitant]
     Dosage: 45 MILLIGRAM
     Route: 048
  14. BETAMETHASONE D-CHLORPHENIRAMINE MALEATE [Concomitant]
     Dosage: 1 DOSAGE FORMS
     Route: 048
     Dates: start: 20110622, end: 20110628
  15. DIGOXIN [Concomitant]
     Dosage: .125 MILLIGRAM
     Route: 048
  16. METENOLONE ACETATE [Concomitant]
     Dosage: 20 MILLIGRAM
     Route: 048
  17. NAFTOPIDIL [Concomitant]
     Dosage: 50 MILLIGRAM
     Route: 048
  18. MAGNESIUM OXIDE [Concomitant]
     Dosage: 1980 MILLIGRAM
     Route: 048
     Dates: start: 20110614
  19. ACYCLOVIR [Concomitant]
     Dosage: 750 MILLIGRAM
     Route: 041
     Dates: start: 20110711, end: 20110713
  20. SENNA-MINT WAF [Concomitant]
     Dosage: 24 MILLIGRAM
     Route: 048
     Dates: start: 20110614
  21. BETAMETHASONE VALERATE [Concomitant]
     Route: 048
     Dates: start: 20110615, end: 20110701
  22. ETIZOLAM [Concomitant]
     Dosage: 1 MILLIGRAM
     Route: 048
     Dates: start: 20110716
  23. ENALAPRIL MALEATE [Concomitant]
     Dosage: 5 MILLIGRAM
     Route: 048
  24. DEXAMETHASONE [Concomitant]
     Dosage: 2 MILLIGRAM
     Route: 048
     Dates: start: 20110629, end: 20110701
  25. RISPERIDONE [Concomitant]
     Dosage: 1 MILLIGRAM
     Route: 048
     Dates: start: 20110716, end: 20110721
  26. VALTREX [Concomitant]
     Dosage: 500 MILLIGRAM
     Route: 048
     Dates: start: 20110716
  27. FUNGUARD [Concomitant]
     Dosage: 150 MILLIGRAM
     Route: 041
     Dates: start: 20110723, end: 20110803

REACTIONS (11)
  - PLATELET COUNT DECREASED [None]
  - ANAEMIA [None]
  - INJECTION SITE REACTION [None]
  - NEUTROPHIL COUNT DECREASED [None]
  - LIP INFECTION [None]
  - WHITE BLOOD CELL COUNT DECREASED [None]
  - SEPSIS [None]
  - CONSTIPATION [None]
  - GAMMA-GLUTAMYLTRANSFERASE INCREASED [None]
  - BLOOD BILIRUBIN INCREASED [None]
  - INSOMNIA [None]
